FAERS Safety Report 6593848-9 (Version None)
Quarter: 2010Q1

REPORT INFORMATION
  Report Type: 
  Country: None (occurrence: None)
  Receive Date: 20100222
  Receipt Date: 20100211
  Transmission Date: 20100710
  Serious: Yes (Other)
  Sender: FDA-Public Use
  Company Number: US-PFIZER INC-2010019917

PATIENT
  Sex: Female

DRUGS (7)
  1. REVATIO [Suspect]
     Indication: PULMONARY HYPERTENSION
     Dosage: 50 MG, 4X/DAY
     Dates: start: 20091101
  2. SPIRIVA [Suspect]
     Indication: PULMONARY CONGESTION
     Dosage: 1 DF, 1X/DAY
     Dates: start: 20091201, end: 20091201
  3. GLUCOPHAGE [Concomitant]
     Indication: DIABETES MELLITUS
     Dosage: 500 MG, 1X/DAY
  4. PLAVIX [Concomitant]
     Indication: STENT PLACEMENT
     Dosage: UNK
  5. ACETYLSALICYLIC ACID [Concomitant]
     Dosage: UNK
  6. LASIX [Concomitant]
     Indication: POLYURIA
     Dosage: UNK
  7. ALDACTONE [Concomitant]
     Indication: POLYURIA
     Dosage: UNK

REACTIONS (12)
  - ASTHENIA [None]
  - CHEST DISCOMFORT [None]
  - CONSTIPATION [None]
  - DYSPNOEA [None]
  - FLUID RETENTION [None]
  - HEADACHE [None]
  - PRODUCTIVE COUGH [None]
  - PULMONARY CONGESTION [None]
  - RETCHING [None]
  - URINARY RETENTION [None]
  - VISION BLURRED [None]
  - VOMITING [None]
